FAERS Safety Report 20862987 (Version 2)
Quarter: 2022Q2

REPORT INFORMATION
  Report Type: Spontaneous
  Country: CH (occurrence: CH)
  Receive Date: 20220523
  Receipt Date: 20220607
  Transmission Date: 20220720
  Serious: Yes (Other)
  Sender: FDA-Public Use
  Company Number: CH-NOVARTISPH-NVSC2022CH114502

PATIENT
  Age: 47 Year
  Sex: Female

DRUGS (3)
  1. MAYZENT [Suspect]
     Active Substance: SIPONIMOD
     Indication: Secondary progressive multiple sclerosis
     Dosage: 2 MG, QD
     Route: 048
     Dates: start: 202106, end: 20220516
  2. MAYZENT [Suspect]
     Active Substance: SIPONIMOD
     Dosage: UNK
     Route: 065
     Dates: start: 20220602
  3. DALFAMPRIDINE [Concomitant]
     Active Substance: DALFAMPRIDINE
     Indication: Product used for unknown indication
     Dosage: 10 MG, BID
     Route: 065
     Dates: start: 202201

REACTIONS (1)
  - Pneumonia legionella [Recovered/Resolved]

NARRATIVE: CASE EVENT DATE: 20220312
